FAERS Safety Report 9938885 (Version 1)
Quarter: 2014Q1

REPORT INFORMATION
  Report Type: Report from Study
  Country: US (occurrence: US)
  Receive Date: 20140303
  Receipt Date: 20140303
  Transmission Date: 20141002
  Serious: No
  Sender: FDA-Public Use
  Company Number: US-ABBVIE-13P-163-1036823-00

PATIENT
  Sex: Female
  Weight: 118.04 kg

DRUGS (4)
  1. HUMIRA [Suspect]
     Indication: CROHN^S DISEASE
     Dates: start: 201203, end: 20130101
  2. ENDOCORT [Concomitant]
     Indication: CROHN^S DISEASE
  3. PROTONIX [Concomitant]
     Indication: CROHN^S DISEASE
  4. CARDURA [Concomitant]
     Indication: HYPERTENSION

REACTIONS (1)
  - Drug ineffective [Not Recovered/Not Resolved]
